FAERS Safety Report 5089694-8 (Version None)
Quarter: 2006Q3

REPORT INFORMATION
  Report Type: 
  Country: None (occurrence: None)
  Receive Date: 20060817
  Receipt Date: 20060731
  Transmission Date: 20061208
  Serious: Yes (Other)
  Sender: FDA-Public Use
  Company Number: 2006BH012290

PATIENT

DRUGS (1)
  1. POLYGAM S/D [Suspect]
     Indication: DRUG USE FOR UNKNOWN INDICATION
     Dates: start: 20060613

REACTIONS (1)
  - HIV ANTIBODY POSITIVE [None]
